FAERS Safety Report 19883825 (Version 1)
Quarter: 2021Q3

REPORT INFORMATION
  Report Type: Spontaneous
  Country: US (occurrence: US)
  Receive Date: 20210924
  Receipt Date: 20210924
  Transmission Date: 20211014
  Serious: Yes (Hospitalization)
  Sender: FDA-Public Use
  Company Number: None

PATIENT
  Age: 65 Year
  Sex: Female
  Weight: 83.46 kg

DRUGS (1)
  1. REGEN?COV [Suspect]
     Active Substance: CASIRIVIMAB\IMDEVIMAB
     Dosage: ?          OTHER FREQUENCY:ONCE;?
     Dates: start: 20210825, end: 20210825

REACTIONS (6)
  - Pneumonia [None]
  - Blood lactic acid increased [None]
  - Disease progression [None]
  - Fibrin D dimer increased [None]
  - C-reactive protein increased [None]
  - Respiratory distress [None]

NARRATIVE: CASE EVENT DATE: 20210828
